FAERS Safety Report 13830127 (Version 2)
Quarter: 2017Q3

REPORT INFORMATION
  Report Type: Report from Study
  Country: US (occurrence: US)
  Receive Date: 20170803
  Receipt Date: 20170804
  Transmission Date: 20171127
  Serious: Yes (Hospitalization, Other)
  Sender: FDA-Public Use
  Company Number: US-009507513-1706USA008941

PATIENT
  Age: 82 Year
  Sex: Male
  Weight: 79.37 kg

DRUGS (11)
  1. TENORMIN [Concomitant]
     Active Substance: ATENOLOL
  2. CALCIUM (UNSPECIFIED) [Concomitant]
     Active Substance: CALCIUM
  3. PEMBROLIZUMAB. [Suspect]
     Active Substance: PEMBROLIZUMAB
     Dosage: UNK UNK, Q3W
     Route: 042
     Dates: start: 20170705
  4. PROSCAR [Suspect]
     Active Substance: FINASTERIDE
     Indication: PROSTATISM
     Dosage: UNK
     Route: 048
     Dates: start: 201704
  5. PEMBROLIZUMAB. [Suspect]
     Active Substance: PEMBROLIZUMAB
     Dosage: 164 ML, Q3W
     Route: 042
     Dates: start: 201704
  6. ASPIRIN. [Concomitant]
     Active Substance: ASPIRIN
  7. PEMBROLIZUMAB. [Suspect]
     Active Substance: PEMBROLIZUMAB
     Indication: MALIGNANT MELANOMA
     Dosage: 164 ML, Q3W
     Route: 042
     Dates: start: 201607
  8. PEMBROLIZUMAB. [Suspect]
     Active Substance: PEMBROLIZUMAB
     Dosage: UNK UNK, Q3W
     Route: 042
     Dates: start: 20170726
  9. TERAZOSIN [Suspect]
     Active Substance: TERAZOSIN\TERAZOSIN HYDROCHLORIDE
     Indication: PROSTATISM
     Dosage: PILL
     Route: 048
     Dates: start: 201704, end: 2017
  10. ASCORBIC ACID. [Concomitant]
     Active Substance: ASCORBIC ACID
  11. VITAMIN D [Concomitant]
     Active Substance: CHOLECALCIFEROL

REACTIONS (24)
  - Tooth extraction [Unknown]
  - Gait disturbance [Unknown]
  - Inappropriate schedule of drug administration [Unknown]
  - Prostate infection [Unknown]
  - Malignant neoplasm progression [Unknown]
  - Asthma [Unknown]
  - Weight increased [Unknown]
  - Pneumonia [Unknown]
  - Adverse event [Unknown]
  - Urinary tract infection [Unknown]
  - Pneumothorax [Unknown]
  - Gingivitis [Unknown]
  - Asthenia [Unknown]
  - Fatigue [Recovered/Resolved]
  - Fungal infection [Unknown]
  - Infection [Unknown]
  - Drug ineffective [Unknown]
  - Sinusitis [Unknown]
  - Cystitis [Unknown]
  - Influenza [Unknown]
  - Dyspnoea exertional [Unknown]
  - Weight fluctuation [Not Recovered/Not Resolved]
  - Somnolence [Recovering/Resolving]
  - Dizziness [Recovered/Resolved]

NARRATIVE: CASE EVENT DATE: 2016
